FAERS Safety Report 19653245 (Version 4)
Quarter: 2021Q4

REPORT INFORMATION
  Report Type: Report from Study
  Country: US (occurrence: US)
  Receive Date: 20210803
  Receipt Date: 20211027
  Transmission Date: 20220303
  Serious: Yes (Other)
  Sender: FDA-Public Use
  Company Number: US-PFIZER INC-2021514501

PATIENT
  Age: 47 Year
  Sex: Female

DRUGS (4)
  1. IBRANCE [Suspect]
     Active Substance: PALBOCICLIB
     Indication: Breast cancer female
     Dosage: 125 MG (DAILY FOR 21 DAYS OF 28 DAY CYCLE)
     Route: 048
     Dates: start: 20210422
  2. IBRANCE [Suspect]
     Active Substance: PALBOCICLIB
     Dosage: 125MG DAILY FOR 21 DAYS OF 28 DAY CYCLE
     Route: 048
     Dates: start: 20210527
  3. IBRANCE [Suspect]
     Active Substance: PALBOCICLIB
     Dosage: 100 MG, CYCLIC (DAILY FOR 21 DAYS OF 28 DAY CYCLE)
     Route: 048
     Dates: start: 20210816
  4. ANASTROZOLE [Concomitant]
     Active Substance: ANASTROZOLE
     Dosage: UNK, DAILY

REACTIONS (9)
  - Myelosuppression [Not Recovered/Not Resolved]
  - Fatigue [Not Recovered/Not Resolved]
  - Nausea [Unknown]
  - Migraine [Recovering/Resolving]
  - Vomiting [Unknown]
  - White blood cell count decreased [Unknown]
  - Headache [Recovering/Resolving]
  - Pain [Recovering/Resolving]
  - Dyspnoea exertional [Unknown]

NARRATIVE: CASE EVENT DATE: 20210101
